FAERS Safety Report 10350252 (Version 1)
Quarter: 2014Q3

REPORT INFORMATION
  Report Type: Spontaneous
  Country: US (occurrence: US)
  Receive Date: 20140730
  Receipt Date: 20140730
  Transmission Date: 20150326
  Serious: Yes (Other)
  Sender: FDA-Public Use
  Company Number: US-PFIZER INC-2014203794

PATIENT
  Age: 77 Year
  Sex: Male

DRUGS (11)
  1. SYNTHROID [Concomitant]
     Active Substance: LEVOTHYROXINE SODIUM
     Dosage: 25 MCG ORAL TABLET: 1 TAB [ACBR]
     Route: 048
  2. MULTIPLE VITAMINS [Concomitant]
     Active Substance: VITAMINS
     Dosage: 1 DF DAILY
     Route: 048
  3. PRESER VISION [Concomitant]
     Dosage: UNK, TWICE A MONTH
     Route: 048
  4. AVODART [Concomitant]
     Active Substance: DUTASTERIDE
     Dosage: 0.5 MG ORAL CAPSULE: 1 DF EVERY OTHER DAY
     Route: 048
  5. FISH OIL [Concomitant]
     Active Substance: FISH OIL
     Dosage: 1000 MG ORAL CAPSULE: 1 DF DAILY
     Route: 048
  6. LISINOPRIL. [Concomitant]
     Active Substance: LISINOPRIL
     Dosage: 10 MG ORAL TABLET: 1 DF DAILY
     Route: 048
  7. PRAVASTATIN [Concomitant]
     Active Substance: PRAVASTATIN\PRAVASTATIN SODIUM
     Dosage: 40 MG ORAL TABLET: 1 DF EVERY OTHER DAY
     Route: 048
  8. CHONDROITIN SULFATE/GLUCOSAMINE HCL/METHYLSULFONYLMETHANE [Concomitant]
     Dosage: 1 DF EVERY OTHER DAY
     Route: 048
  9. PRAVASTATIN [Concomitant]
     Active Substance: PRAVASTATIN\PRAVASTATIN SODIUM
     Dosage: 40 MG ORAL TABLET: 1 DF DAILY
     Route: 048
  10. SUTENT [Suspect]
     Active Substance: SUNITINIB MALATE
     Indication: METASTATIC RENAL CELL CARCINOMA
     Dosage: UNK
  11. SUTENT [Suspect]
     Active Substance: SUNITINIB MALATE
     Dosage: 37.5 MG, DAILY

REACTIONS (10)
  - Blood creatinine increased [Unknown]
  - Hypotension [Unknown]
  - Fatigue [Recovering/Resolving]
  - Blood pressure increased [Unknown]
  - Dyspnoea [Unknown]
  - Metastatic renal cell carcinoma [Unknown]
  - Decreased appetite [Recovering/Resolving]
  - Dysphagia [Unknown]
  - Thrombocytopenia [Unknown]
  - Disease progression [Unknown]
